FAERS Safety Report 6501830-2 (Version None)
Quarter: 2009Q4

REPORT INFORMATION
  Report Type: 
  Country: None (occurrence: None)
  Receive Date: 20091211
  Receipt Date: 20091130
  Transmission Date: 20100525
  Serious: Yes (Hospitalization)
  Sender: FDA-Public Use
  Company Number: WAES 0912USA00547

PATIENT
  Age: 71 Year
  Sex: Female
  Weight: 60.782 kg

DRUGS (6)
  1. DECADRON [Suspect]
     Dosage: 40MG/DAILY/PO
     Route: 048
  2. DARVOCET-N 100 [Suspect]
     Indication: PAIN
     Dosage: 100 MG/Q4H
  3. PRILOSEC [Suspect]
     Dosage: 20 MG/BID
  4. BLINDED THERAPY UNK [Suspect]
     Indication: COGNITIVE DISORDER
     Dosage: PO
     Route: 048
     Dates: start: 20091006, end: 20091030
  5. BLINDED THERAPY UNK [Suspect]
     Indication: COGNITIVE DISORDER
     Dosage: PO
     Route: 048
     Dates: start: 20091113
  6. ATIVAN [Suspect]
     Dosage: 1 MG/DAILY

REACTIONS (6)
  - ACTIVITIES OF DAILY LIVING IMPAIRED [None]
  - BLOOD UREA INCREASED [None]
  - DEHYDRATION [None]
  - FATIGUE [None]
  - LETHARGY [None]
  - WEIGHT DECREASED [None]
